FAERS Safety Report 21205762 (Version 1)
Quarter: 2022Q3

REPORT INFORMATION
  Report Type: Spontaneous
  Country: JP (occurrence: JP)
  Receive Date: 20220812
  Receipt Date: 20220812
  Transmission Date: 20221026
  Serious: Yes (Other)
  Sender: FDA-Public Use
  Company Number: JP-SUN PHARMACEUTICAL INDUSTRIES LTD-2022R1-348470

PATIENT
  Age: 66 Year
  Sex: Male

DRUGS (9)
  1. CISPLATIN [Suspect]
     Active Substance: CISPLATIN
     Indication: Laryngeal cancer
     Dosage: UNK,90 MG (70MG/M 2 ) ON DAY 4
     Route: 065
  2. CISPLATIN [Suspect]
     Active Substance: CISPLATIN
     Indication: Hypopharyngeal cancer stage IV
     Dosage: UNK,100 MG (70 MG/M 2 ) ON DAY 4
     Route: 065
  3. CISPLATIN [Suspect]
     Active Substance: CISPLATIN
     Indication: Metastasis
  4. DOCETAXEL [Suspect]
     Active Substance: DOCETAXEL
     Indication: Laryngeal cancer
     Dosage: UNK,80 MG (60 MG/M 2 ) ON DAY 1
     Route: 065
  5. DOCETAXEL [Suspect]
     Active Substance: DOCETAXEL
     Indication: Hypopharyngeal cancer stage IV
  6. DOCETAXEL [Suspect]
     Active Substance: DOCETAXEL
     Indication: Metastasis
  7. FLUOROURACIL [Suspect]
     Active Substance: FLUOROURACIL
     Indication: Laryngeal cancer stage I
     Dosage: UNK,MG (750 MG/M 2 ) ON DAY 1 TO 5 3 CYCLES
     Route: 065
  8. FLUOROURACIL [Suspect]
     Active Substance: FLUOROURACIL
     Indication: Hypopharyngeal cancer stage IV
  9. FLUOROURACIL [Suspect]
     Active Substance: FLUOROURACIL
     Indication: Metastasis

REACTIONS (2)
  - Laryngeal oedema [Recovering/Resolving]
  - Obstructive sleep apnoea syndrome [Recovering/Resolving]
